FAERS Safety Report 16462167 (Version 4)
Quarter: 2022Q2

REPORT INFORMATION
  Report Type: Spontaneous
  Country: AT (occurrence: AT)
  Receive Date: 20190621
  Receipt Date: 20220420
  Transmission Date: 20220720
  Serious: Yes (Hospitalization, Other)
  Sender: FDA-Public Use
  Company Number: PHHY2019AT142842

PATIENT
  Age: 66 Year
  Sex: Male
  Weight: 103 kg

DRUGS (23)
  1. TACROLIMUS [Suspect]
     Active Substance: TACROLIMUS
     Indication: Prophylaxis against transplant rejection
     Dosage: 8 MG, QD
     Route: 048
     Dates: start: 20160312
  2. PREDNISOLONE [Concomitant]
     Active Substance: PREDNISOLONE
     Indication: Immunosuppressant drug therapy
     Dosage: 60 MG,  TOTAL DAILY DOSE
     Route: 065
     Dates: start: 20160312, end: 20160312
  3. PREDNISOLONE [Concomitant]
     Active Substance: PREDNISOLONE
     Dosage: 50 MG, TOTAL DAILY DOSE
     Route: 065
     Dates: start: 20160313, end: 20160313
  4. PREDNISOLONE [Concomitant]
     Active Substance: PREDNISOLONE
     Dosage: 40 MG, TOTAL DAILY DOSE
     Route: 065
     Dates: start: 20160314, end: 20160314
  5. PREDNISOLONE [Concomitant]
     Active Substance: PREDNISOLONE
     Dosage: 30 MG, TOTAL DAILY DOSE
     Route: 065
     Dates: start: 20160315, end: 20160315
  6. PREDNISOLONE [Concomitant]
     Active Substance: PREDNISOLONE
     Dosage: 25 MG, TOTAL DAILY DOSE
     Route: 065
     Dates: start: 20160316, end: 20160327
  7. PREDNISOLONE [Concomitant]
     Active Substance: PREDNISOLONE
     Dosage: 20 MG, TOTAL DAILY DOSE
     Route: 065
     Dates: start: 20160328, end: 20160427
  8. PREDNISOLONE [Concomitant]
     Active Substance: PREDNISOLONE
     Dosage: 17.5 MG, TOTAL DAILY DOSE
     Route: 065
     Dates: start: 20160428, end: 20160510
  9. PREDNISOLONE [Concomitant]
     Active Substance: PREDNISOLONE
     Dosage: 15 MG, TOTAL DAILY DOSE
     Route: 065
     Dates: start: 20160511, end: 20160725
  10. PREDNISOLONE [Concomitant]
     Active Substance: PREDNISOLONE
     Dosage: 12.5 MG, TOTAL DAILY DOSE
     Route: 065
     Dates: start: 20160726, end: 20160825
  11. PREDNISOLONE [Concomitant]
     Active Substance: PREDNISOLONE
     Dosage: 10 MG, TOTAL DAILY DOSE
     Route: 065
     Dates: start: 20160826, end: 20160928
  12. PREDNISOLONE [Concomitant]
     Active Substance: PREDNISOLONE
     Dosage: 7.5 MG, TOTAL DAILY DOSE
     Route: 065
     Dates: start: 20160929, end: 20161023
  13. PREDNISOLONE [Concomitant]
     Active Substance: PREDNISOLONE
     Dosage: 5 UNK, QD (ONCE DAILY)
     Route: 065
     Dates: start: 20161024, end: 20190520
  14. PREDNISOLONE [Concomitant]
     Active Substance: PREDNISOLONE
     Dosage: 5 MG, TOTAL DAILY DOSE
     Route: 065
     Dates: start: 20161024, end: 20190520
  15. PREDNISOLONE [Concomitant]
     Active Substance: PREDNISOLONE
     Dosage: 25 UNK, QD (ONCE DAILY)
     Route: 065
     Dates: start: 20190521
  16. PREDNISOLONE [Concomitant]
     Active Substance: PREDNISOLONE
     Dosage: 25 MG, TOTAL DAILY DOSE
     Route: 065
     Dates: start: 20190521, end: 20190524
  17. PREDNISOLONE [Concomitant]
     Active Substance: PREDNISOLONE
     Dosage: 5 MG, TOTAL DAILY DOSE
     Route: 065
     Dates: start: 20190525
  18. MYCOPHENOLATE MOFETIL [Concomitant]
     Active Substance: MYCOPHENOLATE MOFETIL
     Indication: Immunosuppressant drug therapy
     Dosage: 2000 UNK, QD (ONCE DAILY)
     Route: 065
     Dates: start: 20160306, end: 20190520
  19. MYCOPHENOLATE MOFETIL [Concomitant]
     Active Substance: MYCOPHENOLATE MOFETIL
     Dosage: 1500 MG, TOTAL DAILY DOSE
     Route: 065
     Dates: start: 20190521, end: 20190530
  20. MYCOPHENOLIC ACID [Concomitant]
     Active Substance: MYCOPHENOLIC ACID
     Indication: Immunosuppression
     Dosage: 1000 MG, TOTAL DAILY DOSE
     Route: 065
     Dates: start: 20190531, end: 20190531
  21. MYCOPHENOLIC ACID [Concomitant]
     Active Substance: MYCOPHENOLIC ACID
     Dosage: 1000 MG, TOTAL DAILY DOSE
     Route: 065
     Dates: start: 20190606, end: 20190608
  22. MYCOPHENOLIC ACID [Concomitant]
     Active Substance: MYCOPHENOLIC ACID
     Dosage: 500 MG, TOTAL DAILY DOSE
     Route: 065
     Dates: start: 20190602, end: 20190603
  23. MYCOPHENOLIC ACID [Concomitant]
     Active Substance: MYCOPHENOLIC ACID
     Dosage: 2000 MG, TOTAL DAILY DOSE
     Route: 065
     Dates: start: 20190609

REACTIONS (5)
  - Non-small cell lung cancer [Not Recovered/Not Resolved]
  - Cytomegalovirus infection reactivation [Recovered/Resolved]
  - Inflammatory marker increased [Not Recovered/Not Resolved]
  - Cytomegalovirus test positive [Not Recovered/Not Resolved]
  - Pneumonia [Not Recovered/Not Resolved]

NARRATIVE: CASE EVENT DATE: 20190521
